FAERS Safety Report 4292415-X (Version None)
Quarter: 2004Q1

REPORT INFORMATION
  Report Type: 
  Country: None (occurrence: None)
  Receive Date: 20040126
  Receipt Date: 20030902
  Transmission Date: 20041129
  Serious: No
  Sender: FDA-Public Use
  Company Number: USA030946026

PATIENT
  Age: 73 Year
  Sex: Female
  Weight: 90 kg

DRUGS (4)
  1. FORTEO [Suspect]
     Indication: OSTEOPOROSIS
     Dates: start: 20030601
  2. HUMULIN 70/30 [Suspect]
  3. METFORMIN [Concomitant]
  4. FOSAMAX [Concomitant]

REACTIONS (3)
  - BLOOD URINE [None]
  - CYSTITIS [None]
  - PARAESTHESIA [None]
